FAERS Safety Report 12455380 (Version 2)
Quarter: 2016Q3

REPORT INFORMATION
  Report Type: Spontaneous
  Country: JP (occurrence: JP)
  Receive Date: 20160610
  Receipt Date: 20160705
  Transmission Date: 20161109
  Serious: Yes (Death, Hospitalization)
  Sender: FDA-Public Use
  Company Number: JP-ELI_LILLY_AND_COMPANY-JP201606003142

PATIENT
  Age: 58 Year
  Sex: Male
  Weight: 66.5 kg

DRUGS (6)
  1. CYRAMZA [Suspect]
     Active Substance: RAMUCIRUMAB
     Indication: GASTRIC CANCER STAGE IV
     Dosage: 562.4 MG, OTHER
     Route: 042
     Dates: start: 20151120, end: 20160429
  2. GASTER [Concomitant]
     Active Substance: FAMOTIDINE
     Indication: PROPHYLAXIS
     Dosage: 20 MG, UNK
     Route: 042
     Dates: start: 20151120, end: 20160429
  3. ORGADRONE                          /00016002/ [Concomitant]
     Indication: PROPHYLAXIS
     Dosage: 2 DF, UNK
     Route: 042
     Dates: start: 20151120, end: 20160429
  4. PACLITAXEL. [Concomitant]
     Active Substance: PACLITAXEL
     Indication: GASTRIC CANCER STAGE IV
     Dosage: 1112.5 MG, OTHER
     Route: 042
     Dates: start: 20151120, end: 20160429
  5. SEROTONE [Concomitant]
     Active Substance: AZASETRON HYDROCHLORIDE
     Indication: PROPHYLAXIS
     Dosage: 10 MG, UNK
     Route: 042
     Dates: start: 20151120, end: 20160429
  6. POLARAMINE [Concomitant]
     Active Substance: DEXCHLORPHENIRAMINE MALEATE
     Indication: PROPHYLAXIS
     Dosage: 5 MG, UNK
     Route: 042
     Dates: start: 20151120, end: 20160429

REACTIONS (7)
  - Anal abscess [Not Recovered/Not Resolved]
  - Disseminated intravascular coagulation [Unknown]
  - Malignant pleural effusion [Fatal]
  - Febrile neutropenia [Unknown]
  - Sepsis [Unknown]
  - Anal fistula [Not Recovered/Not Resolved]
  - Hepatic atrophy [Unknown]

NARRATIVE: CASE EVENT DATE: 20160522
